FAERS Safety Report 6790474-3 (Version None)
Quarter: 2010Q2

REPORT INFORMATION
  Report Type: 
  Country: None (occurrence: None)
  Receive Date: 20100624
  Receipt Date: 20100616
  Transmission Date: 20101027
  Serious: Yes (Other)
  Sender: FDA-Public Use
  Company Number: US-JNJCH-2010014580

PATIENT
  Age: 25 Year
  Sex: Female

DRUGS (1)
  1. BENADRYL [Suspect]
     Indication: DERMATITIS CONTACT
     Dosage: TEXT:2 TABLETS TWICE DAILY
     Route: 048
     Dates: start: 20100612, end: 20100613

REACTIONS (3)
  - HYPERSENSITIVITY [None]
  - OFF LABEL USE [None]
  - PRODUCT QUALITY ISSUE [None]
